FAERS Safety Report 6542408-4 (Version None)
Quarter: 2010Q1

REPORT INFORMATION
  Report Type: 
  Country: None (occurrence: None)
  Receive Date: 20100119
  Receipt Date: 20100110
  Transmission Date: 20100710
  Serious: Yes (Other)
  Sender: FDA-Public Use
  Company Number: US-JNJFOC-20100105229

PATIENT
  Sex: Female

DRUGS (2)
  1. TYLENOL (CAPLET) [Suspect]
     Indication: ARTHRALGIA
     Dosage: 2600-3900MG A WEEK
  2. TYLENOL (CAPLET) [Suspect]
     Indication: ARTHRITIS
     Dosage: 2600-3900MG A WEEK

REACTIONS (6)
  - ABDOMINAL PAIN UPPER [None]
  - DECREASED APPETITE [None]
  - DIARRHOEA [None]
  - GASTRIC ULCER [None]
  - NAUSEA [None]
  - PRODUCT QUALITY ISSUE [None]
